FAERS Safety Report 14800667 (Version 1)
Quarter: 2018Q2

REPORT INFORMATION
  Report Type: Spontaneous
  Country: DE (occurrence: DE)
  Receive Date: 20180424
  Receipt Date: 20180424
  Transmission Date: 20180711
  Serious: Yes (Hospitalization)
  Sender: FDA-Public Use
  Company Number: DE-SA-2018SA112585

PATIENT
  Age: 57 Year
  Sex: Female

DRUGS (3)
  1. LORAZEPAM. [Suspect]
     Active Substance: LORAZEPAM
     Dosage: DOSAGE TEXT NK MG, NK
     Route: 065
  2. IBUPROFEN. [Concomitant]
     Active Substance: IBUPROFEN
  3. ZOLPIDEM [Suspect]
     Active Substance: ZOLPIDEM\ZOLPIDEM TARTRATE
     Dosage: DOSAGE TEXT NK MG, 0-0-0-2
     Route: 048

REACTIONS (8)
  - Product used for unknown indication [Unknown]
  - Haematoma [Unknown]
  - Alcohol poisoning [Unknown]
  - Fall [Unknown]
  - Contraindicated product administered [Unknown]
  - Contusion [Unknown]
  - Drug prescribing error [Unknown]
  - Accidental overdose [Unknown]
